FAERS Safety Report 12471327 (Version 1)
Quarter: 2016Q2

REPORT INFORMATION
  Report Type: Spontaneous
  Country: US (occurrence: US)
  Receive Date: 20160616
  Receipt Date: 20160616
  Transmission Date: 20160815
  Serious: No
  Sender: FDA-Public Use
  Company Number: GXBR2016US001798

PATIENT
  Age: 55 Year
  Sex: Male

DRUGS (1)
  1. GLATOPA [Suspect]
     Active Substance: GLATIRAMER ACETATE
     Indication: PRODUCT USED FOR UNKNOWN INDICATION
     Dosage: UNK DF, UNK
     Route: 065

REACTIONS (5)
  - Headache [Unknown]
  - Hypoaesthesia [Unknown]
  - Furuncle [Unknown]
  - Drug ineffective [Unknown]
  - Burning sensation [Unknown]

NARRATIVE: CASE EVENT DATE: 20150922
